FAERS Safety Report 7482299-0 (Version None)
Quarter: 2011Q2

REPORT INFORMATION
  Report Type: 
  Country: None (occurrence: None)
  Receive Date: 20110516
  Receipt Date: 20110509
  Transmission Date: 20111010
  Serious: No
  Sender: FDA-Public Use
  Company Number: US-PFIZER INC-2010019942

PATIENT
  Sex: Male
  Weight: 65.8 kg

DRUGS (8)
  1. CARVEDILOL [Concomitant]
     Dosage: 3.25 MG, 2X/DAY
     Route: 048
  2. DIGOXIN [Concomitant]
     Dosage: 125 UG, 1X/DAY
     Route: 048
  3. WARFARIN SODIUM [Concomitant]
     Dosage: 5 MG, 1X/DAY
     Route: 048
  4. MULTI-VITAMINS [Concomitant]
     Dosage: UNK
  5. LISINOPRIL [Concomitant]
     Indication: HYPERTENSION
     Dosage: 5 MG, 2X/DAY
     Route: 048
  6. ALLOPURINOL [Concomitant]
     Dosage: 150 MG, 1X/DAY
     Route: 048
  7. REVATIO [Suspect]
     Indication: PULMONARY HYPERTENSION
     Dosage: 10 MG, 3X/DAY
     Route: 048
     Dates: start: 20091001
  8. LASIX [Concomitant]
     Dosage: 20 MG, 1X/DAY
     Route: 048

REACTIONS (1)
  - BACK PAIN [None]
